FAERS Safety Report 23445907 (Version 1)
Quarter: 2024Q1

REPORT INFORMATION
  Report Type: Report from Study
  Country: CA (occurrence: CA)
  Receive Date: 20240126
  Receipt Date: 20240126
  Transmission Date: 20240410
  Serious: Yes (Death)
  Sender: FDA-Public Use
  Company Number: CA-BEH-2024167878

PATIENT
  Age: 81 Year
  Sex: Male
  Weight: 68 kg

DRUGS (14)
  1. HIZENTRA [Suspect]
     Active Substance: HUMAN IMMUNOGLOBULIN G
     Indication: Chronic inflammatory demyelinating polyradiculoneuropathy
     Dosage: 14 GRAM, QW
     Route: 065
     Dates: start: 20230105
  2. DAPAGLIFLOZIN [Concomitant]
     Active Substance: DAPAGLIFLOZIN
  3. GLICLAZIDE [Concomitant]
     Active Substance: GLICLAZIDE
  4. FUROSEMIDE [Concomitant]
     Active Substance: FUROSEMIDE
  5. VITAMIN B12 [Concomitant]
     Active Substance: CYANOCOBALAMIN
  6. FERROUS SULFATE [Concomitant]
     Active Substance: FERROUS SULFATE
  7. PANTOPRAZOLE [Concomitant]
     Active Substance: PANTOPRAZOLE
  8. ASPIRIN [Concomitant]
     Active Substance: ASPIRIN
  9. METFORMIN [Concomitant]
     Active Substance: METFORMIN HYDROCHLORIDE
  10. TRULICITY [Concomitant]
     Active Substance: DULAGLUTIDE
  11. TELMISARTAN [Concomitant]
     Active Substance: TELMISARTAN
  12. TYLENOL [Concomitant]
     Active Substance: ACETAMINOPHEN
  13. DOCUSATE [Concomitant]
     Active Substance: DOCUSATE
  14. TRESIBA [Concomitant]
     Active Substance: INSULIN DEGLUDEC

REACTIONS (1)
  - Death [Fatal]

NARRATIVE: CASE EVENT DATE: 20231212
